FAERS Safety Report 12860805 (Version 1)
Quarter: 2016Q4

REPORT INFORMATION
  Report Type: Spontaneous
  Country: JP (occurrence: JP)
  Receive Date: 20161019
  Receipt Date: 20161019
  Transmission Date: 20170207
  Serious: Yes (Other)
  Sender: FDA-Public Use
  Company Number: GXJP2016JP001557

PATIENT
  Age: 36 Year
  Sex: Female

DRUGS (2)
  1. CEFOTAXIME [Suspect]
     Active Substance: CEFOTAXIME SODIUM
     Indication: ENDOCARDITIS
     Dosage: 6 G, QD
     Route: 042
  2. CEFTRIAXONE NA FOR INTRAVENOUS INJECTION [Suspect]
     Active Substance: CEFTRIAXONE
     Indication: ENDOCARDITIS
     Dosage: 4 G, QD
     Route: 042

REACTIONS (3)
  - Biliary dilatation [Recovered/Resolved]
  - Hepatic enzyme increased [Recovering/Resolving]
  - Bile duct stone [Unknown]
